FAERS Safety Report 9753593 (Version 1)
Quarter: 2013Q4

REPORT INFORMATION
  Report Type: Spontaneous
  Country: SE (occurrence: SE)
  Receive Date: 20131213
  Receipt Date: 20131213
  Transmission Date: 20140711
  Serious: Yes (Life-Threatening)
  Sender: FDA-Public Use
  Company Number: PHHY2013SE142761

PATIENT
  Age: 27 Year
  Sex: Male

DRUGS (6)
  1. RITALINE [Suspect]
     Indication: ATTENTION DEFICIT/HYPERACTIVITY DISORDER
     Dosage: 3 DF, QD
     Dates: start: 2008, end: 20131101
  2. RITALIN [Suspect]
     Indication: ATTENTION DEFICIT/HYPERACTIVITY DISORDER
     Dosage: 1 DF, QD IN THE AFTERNOON
     Dates: end: 20131101
  3. METFORMIN [Concomitant]
  4. SIMVASTATIN [Concomitant]
  5. VENLAFAXINE [Concomitant]
  6. INSULIN [Concomitant]

REACTIONS (1)
  - Myocardial infarction [Recovered/Resolved]
